FAERS Safety Report 15446773 (Version 1)
Quarter: 2018Q3

REPORT INFORMATION
  Report Type: Spontaneous
  Country: US (occurrence: US)
  Receive Date: 20180928
  Receipt Date: 20180928
  Transmission Date: 20181010
  Serious: No
  Sender: FDA-Public Use
  Company Number: US-AMGEN-USASP2018098959

PATIENT
  Age: 37 Year
  Sex: Female

DRUGS (2)
  1. DEPO?PROVERA [Concomitant]
     Active Substance: MEDROXYPROGESTERONE ACETATE
     Indication: CONTRACEPTION
     Dosage: UNK, Q3MO
     Dates: start: 2008
  2. PROLIA [Suspect]
     Active Substance: DENOSUMAB
     Indication: PRODUCT USED FOR UNKNOWN INDICATION
     Dosage: UNK
     Route: 065
     Dates: start: 20180713

REACTIONS (5)
  - Arthralgia [Unknown]
  - Wrong drug administered [Unknown]
  - Alopecia [Not Recovered/Not Resolved]
  - Contusion [Unknown]
  - Myalgia [Unknown]

NARRATIVE: CASE EVENT DATE: 201807
